FAERS Safety Report 23845340 (Version 2)
Quarter: 2024Q2

REPORT INFORMATION
  Report Type: Spontaneous
  Country: GB (occurrence: GB)
  Receive Date: 20240511
  Receipt Date: 20240524
  Transmission Date: 20240716
  Serious: Yes (Other)
  Sender: FDA-Public Use
  Company Number: None

PATIENT
  Age: 56 Year
  Sex: Female
  Weight: 70 kg

DRUGS (6)
  1. MONTELUKAST [Suspect]
     Active Substance: MONTELUKAST SODIUM
     Dosage: TAKE ONE AT NIGHT
     Route: 065
     Dates: start: 20240102
  2. LEVOTHYROXINE [Concomitant]
     Active Substance: LEVOTHYROXINE\LEVOTHYROXINE SODIUM
     Dosage: (TAKE ONE DAILY)
     Route: 065
     Dates: start: 20240102
  3. PREDNISOLONE [Concomitant]
     Active Substance: PREDNISOLONE
     Dosage: 6 DAILY FOR 5D, DURATION: 1 DAY
     Route: 065
     Dates: start: 20240402, end: 20240403
  4. BUDESONIDE\FORMOTEROL FUMARATE [Concomitant]
     Active Substance: BUDESONIDE\FORMOTEROL FUMARATE
     Indication: Asthma
     Dosage: (TWO PUFFS TWICE A DAY IN ASTHMA ONLY. PLEASE R..)
     Route: 065
     Dates: start: 20240102
  5. AMOXICILLIN [Concomitant]
     Active Substance: AMOXICILLIN
     Dosage: TIME INTERVAL: 0.33333333 DAYS: TAKE ONE 3 TIMES PER DAY
     Route: 065
     Dates: start: 20240227, end: 20240303
  6. ALBUTEROL [Concomitant]
     Active Substance: ALBUTEROL
     Dosage: TAKE ONE OR TWO PUFFS WHEN REQUIRED FOR BREATHL..
     Route: 065
     Dates: start: 20240102

REACTIONS (2)
  - Mood altered [Recovered/Resolved]
  - Abnormal dreams [Unknown]

NARRATIVE: CASE EVENT DATE: 20240501
